FAERS Safety Report 14917462 (Version 1)
Quarter: 2018Q2

REPORT INFORMATION
  Report Type: Spontaneous
  Country: ES (occurrence: ES)
  Receive Date: 20180521
  Receipt Date: 20180521
  Transmission Date: 20180711
  Serious: Yes (Hospitalization, Other)
  Sender: FDA-Public Use
  Company Number: ES-B.I. PHARMACEUTICALS,INC./RIDGEFIELD-2018-BI-025957

PATIENT

DRUGS (4)
  1. NINTEDANIB [Suspect]
     Active Substance: NINTEDANIB
     Indication: IDIOPATHIC PULMONARY FIBROSIS
     Route: 065
  2. CIPROFLOXACIN. [Suspect]
     Active Substance: CIPROFLOXACIN
     Indication: PRODUCT USED FOR UNKNOWN INDICATION
     Route: 065
  3. NINTEDANIB [Suspect]
     Active Substance: NINTEDANIB
     Route: 065
  4. NINTEDANIB [Suspect]
     Active Substance: NINTEDANIB
     Route: 065

REACTIONS (4)
  - Diverticulitis [Recovered/Resolved]
  - Transaminases increased [Recovered/Resolved]
  - Pseudomonas infection [Recovered/Resolved]
  - Acute kidney injury [Recovered/Resolved]
